FAERS Safety Report 4926841-X (Version None)
Quarter: 2006Q1

REPORT INFORMATION
  Report Type: 
  Country: None (occurrence: None)
  Receive Date: 20060228
  Receipt Date: 20050701
  Transmission Date: 20060701
  Serious: No
  Sender: FDA-Public Use
  Company Number: US-GLAXOSMITHKLINE-A0564832A

PATIENT
  Age: 35 Year
  Sex: Female

DRUGS (5)
  1. LAMICTAL [Suspect]
     Indication: BIPOLAR DISORDER
     Dosage: 50MG PER DAY
     Route: 048
     Dates: start: 20050526
  2. GABAPENTIN [Concomitant]
  3. ALBUTEROL [Concomitant]
  4. CLARITIN [Concomitant]
  5. KLONOPIN [Concomitant]

REACTIONS (6)
  - APHONIA [None]
  - COUGH [None]
  - EYELID DISORDER [None]
  - EYELID OEDEMA [None]
  - LYMPHADENOPATHY [None]
  - NASAL CONGESTION [None]
